FAERS Safety Report 6533654-4 (Version None)
Quarter: 2010Q1

REPORT INFORMATION
  Report Type: 
  Country: None (occurrence: None)
  Receive Date: 20100108
  Receipt Date: 20100108
  Transmission Date: 20100710
  Serious: Yes (Hospitalization)
  Sender: FDA-Public Use
  Company Number: None

PATIENT
  Age: 60 Year
  Sex: Male
  Weight: 53.98 kg

DRUGS (1)
  1. MOXIFLOXACIN HCL [Suspect]
     Indication: CHRONIC OBSTRUCTIVE PULMONARY DISEASE
     Dosage: 400 MG EVERY DAY PO
     Route: 048
     Dates: start: 20091208, end: 20091209

REACTIONS (2)
  - PRURITUS [None]
  - URTICARIA [None]
